FAERS Safety Report 5025124-X (Version None)
Quarter: 2006Q2

REPORT INFORMATION
  Report Type: 
  Country: None (occurrence: None)
  Receive Date: 20060609
  Receipt Date: 20060609
  Transmission Date: 20061013
  Serious: No
  Sender: FDA-Public Use
  Company Number: None

PATIENT
  Age: 49 Year
  Sex: Male
  Weight: 75.2971 kg

DRUGS (2)
  1. OXYCODONE 40MG [Suspect]
     Indication: PAIN
     Dosage: 1 TABLET BID PO
     Route: 048
     Dates: start: 20060215, end: 20060220
  2. OXYCODONE 20MG [Suspect]
     Indication: PAIN
     Dosage: 1 TABLET BID PO
     Route: 048
     Dates: start: 20060215, end: 20060220

REACTIONS (2)
  - PHARMACEUTICAL PRODUCT COMPLAINT [None]
  - RASH [None]
